FAERS Safety Report 6301789-7 (Version None)
Quarter: 2009Q3

REPORT INFORMATION
  Report Type: 
  Country: None (occurrence: None)
  Receive Date: 20090807
  Receipt Date: 20090731
  Transmission Date: 20100115
  Serious: Yes (Other)
  Sender: FDA-Public Use
  Company Number: US-ASTRAZENECA-2009UW14170

PATIENT
  Age: 21 Year
  Sex: Female

DRUGS (5)
  1. SEROQUEL [Suspect]
     Indication: PSYCHOTIC DISORDER
     Route: 048
     Dates: start: 20080326, end: 20080528
  2. LAMICTAL [Concomitant]
     Route: 048
     Dates: start: 20080208, end: 20080521
  3. WELLBUTRIN SR [Concomitant]
     Indication: DEPRESSION
  4. TRILAFON [Concomitant]
     Indication: PSYCHOTIC DISORDER
     Route: 048
  5. COGENTIN [Concomitant]
     Indication: EXTRAPYRAMIDAL DISORDER

REACTIONS (2)
  - PYREXIA [None]
  - RASH ERYTHEMATOUS [None]
